FAERS Safety Report 8101879-2 (Version None)
Quarter: 2012Q1

REPORT INFORMATION
  Report Type: 
  Country: None (occurrence: None)
  Receive Date: 20120131
  Receipt Date: 20120124
  Transmission Date: 20120608
  Serious: Yes (Other)
  Sender: FDA-Public Use
  Company Number: US-US-EMD SERONO, INC.-7102346

PATIENT
  Sex: Female

DRUGS (2)
  1. ANALGESIC [Concomitant]
     Indication: PREMEDICATION
  2. REBIF [Suspect]
     Indication: MULTIPLE SCLEROSIS
     Route: 058
     Dates: start: 20110715

REACTIONS (5)
  - CHEST PAIN [None]
  - DEPRESSION [None]
  - PULMONARY MASS [None]
  - INJECTION SITE ERYTHEMA [None]
  - BALANCE DISORDER [None]
